FAERS Safety Report 10729365 (Version 1)
Quarter: 2015Q1

REPORT INFORMATION
  Report Type: Spontaneous
  Country: PR (occurrence: PR)
  Receive Date: 20150122
  Receipt Date: 20150122
  Transmission Date: 20150721
  Serious: Yes (Death)
  Sender: FDA-Public Use
  Company Number: PR-UNITED THERAPEUTICS-UNT-2014-012845

PATIENT
  Age: 54 Year
  Sex: Female

DRUGS (2)
  1. TYVASO [Suspect]
     Active Substance: TREPROSTINIL
     Dosage: 36-48 MICROGRAMS, QID
     Dates: start: 201309, end: 20141223
  2. TYVASO [Suspect]
     Active Substance: TREPROSTINIL
     Indication: PRODUCT USED FOR UNKNOWN INDICATION
     Dosage: 36-48 MICROGRAMS, QID
     Dates: start: 20130919, end: 20141204

REACTIONS (2)
  - Adverse drug reaction [Unknown]
  - Death [Fatal]

NARRATIVE: CASE EVENT DATE: 20141223
